FAERS Safety Report 10501921 (Version 8)
Quarter: 2015Q2

REPORT INFORMATION
  Report Type: Spontaneous
  Country: IL (occurrence: IL)
  Receive Date: 20141007
  Receipt Date: 20150612
  Transmission Date: 20150821
  Serious: Yes (Other)
  Sender: FDA-Public Use
  Company Number: IL-PFIZER INC-2014148308

PATIENT
  Age: 68 Year
  Sex: Male

DRUGS (14)
  1. CONTROLOC [Concomitant]
     Active Substance: PANTOPRAZOLE SODIUM
  2. DUODART [Concomitant]
     Active Substance: DUTASTERIDE\TAMSULOSIN
  3. VASODIP [Concomitant]
  4. VITAMIN B NOS [Concomitant]
     Active Substance: VITAMIN B
  5. SUTENT [Suspect]
     Active Substance: SUNITINIB MALATE
     Dosage: 37.5 MG, 1X/DAY
     Route: 048
     Dates: start: 20150512
  6. CREON [Concomitant]
     Active Substance: PANCRELIPASE AMYLASE\PANCRELIPASE LIPASE\PANCRELIPASE PROTEASE
  7. CALCILESS [Concomitant]
  8. SANDOSTATIN [Concomitant]
     Active Substance: OCTREOTIDE ACETATE
     Dosage: UNK
  9. SUTENT [Suspect]
     Active Substance: SUNITINIB MALATE
     Indication: PANCREATIC NEUROENDOCRINE TUMOUR
     Dosage: 25 MG, 1X/DAY CONSECUTIVELY, CUMULATIVE DOSE OVER 3000MG
     Route: 048
     Dates: start: 20140518
  10. SLOW-K [Concomitant]
     Active Substance: POTASSIUM CHLORIDE
  11. VITAMIN D [Concomitant]
     Active Substance: CHOLECALCIFEROL
  12. SUTENT [Suspect]
     Active Substance: SUNITINIB MALATE
     Dosage: 37.5 MG ALTERNATELY WITH 25 MG, CONSECUTIVELY
  13. LORATADINE. [Concomitant]
     Active Substance: LORATADINE
  14. MAG [Concomitant]

REACTIONS (29)
  - Oral pain [Recovering/Resolving]
  - Skin sensitisation [Unknown]
  - White blood cell count decreased [Unknown]
  - Asthenia [Not Recovered/Not Resolved]
  - Skin papilloma [Not Recovered/Not Resolved]
  - Erythema [Unknown]
  - Hypertension [Recovering/Resolving]
  - Subcutaneous abscess [Unknown]
  - Disease progression [Unknown]
  - Diarrhoea [Unknown]
  - Lacrimation increased [Unknown]
  - Palmar-plantar erythrodysaesthesia syndrome [Not Recovered/Not Resolved]
  - Scleral haemorrhage [Not Recovered/Not Resolved]
  - Decreased appetite [Not Recovered/Not Resolved]
  - Macule [Unknown]
  - Haematochezia [Unknown]
  - Headache [Recovering/Resolving]
  - Flatulence [Not Recovered/Not Resolved]
  - Fatigue [Not Recovered/Not Resolved]
  - Platelet count decreased [Unknown]
  - Protein urine present [Unknown]
  - Dry skin [Recovering/Resolving]
  - Cataract [Not Recovered/Not Resolved]
  - Chromaturia [Unknown]
  - Pancreatic neuroendocrine tumour [Unknown]
  - Viral infection [Recovering/Resolving]
  - Epistaxis [Unknown]
  - Dysgeusia [Recovering/Resolving]
  - Stomatitis [Recovering/Resolving]

NARRATIVE: CASE EVENT DATE: 2014
